FAERS Safety Report 17141241 (Version 1)
Quarter: 2019Q4

REPORT INFORMATION
  Report Type: Spontaneous
  Country: DK (occurrence: DK)
  Receive Date: 20191211
  Receipt Date: 20191211
  Transmission Date: 20200122
  Serious: Yes (Disabling)
  Sender: FDA-Public Use
  Company Number: DK-PFIZER INC-2019530109

PATIENT
  Age: 67 Year
  Sex: Female

DRUGS (3)
  1. ZOLEDRONIC ACID [Suspect]
     Active Substance: ZOLEDRONIC ACID
     Indication: METASTASES TO BONE
     Dosage: VARYING DOSE
     Route: 042
     Dates: start: 20111227, end: 201408
  2. FASLODEX [Concomitant]
     Active Substance: FULVESTRANT
     Indication: BREAST CANCER
     Dosage: UNK
     Route: 030
     Dates: start: 2014
  3. ZOLEDRONIC ACID [Suspect]
     Active Substance: ZOLEDRONIC ACID
     Dosage: VARYING DOSE
     Dates: start: 20150709, end: 20190328

REACTIONS (3)
  - Loose tooth [Recovered/Resolved]
  - Osteonecrosis of jaw [Recovered/Resolved]
  - Osteonecrosis of jaw [Unknown]

NARRATIVE: CASE EVENT DATE: 201408
